FAERS Safety Report 16022329 (Version 6)
Quarter: 2020Q1

REPORT INFORMATION
  Report Type: Spontaneous
  Country: US (occurrence: US)
  Receive Date: 20190301
  Receipt Date: 20200331
  Transmission Date: 20200409
  Serious: Yes (Other)
  Sender: FDA-Public Use
  Company Number: US-CELGENEUS-USA-20190208266

PATIENT
  Age: 70 Year
  Sex: Female

DRUGS (3)
  1. OTEZLA [Suspect]
     Active Substance: APREMILAST
     Indication: PSORIASIS
     Dosage: 60 MILLIGRAM
     Route: 048
     Dates: start: 20190214, end: 2019
  2. HUMIRA [Suspect]
     Active Substance: ADALIMUMAB
     Dosage: 40 MILLIGRAM
     Route: 058
  3. HUMIRA [Suspect]
     Active Substance: ADALIMUMAB
     Indication: PSORIASIS
     Dosage: 40 MILLIGRAM
     Route: 058
     Dates: start: 20190617

REACTIONS (13)
  - Bone disorder [Unknown]
  - Impaired work ability [Recovering/Resolving]
  - Psoriasis [Recovered/Resolved]
  - Fatigue [Recovering/Resolving]
  - Chills [Recovering/Resolving]
  - Rhinorrhoea [Recovering/Resolving]
  - Feeling abnormal [Unknown]
  - Irritability [Recovering/Resolving]
  - Scratch [Unknown]
  - Stress [Unknown]
  - Cystitis [Recovering/Resolving]
  - Feeling cold [Unknown]
  - Nodule [Unknown]

NARRATIVE: CASE EVENT DATE: 2019
